FAERS Safety Report 6025096-5 (Version None)
Quarter: 2008Q4

REPORT INFORMATION
  Report Type: 
  Country: None (occurrence: None)
  Receive Date: 20081224
  Receipt Date: 20081217
  Transmission Date: 20090506
  Serious: Yes (Other)
  Sender: FDA-Public Use
  Company Number: PAR_02481_2008

PATIENT
  Age: 81 Year
  Sex: Male
  Weight: 82 kg

DRUGS (9)
  1. HYDROXYUREA [Suspect]
     Indication: ANAEMIA
     Dosage: (500 MG BID)
  2. HYDROXYUREA [Suspect]
     Indication: MYELOFIBROSIS
     Dosage: (500 MG BID)
  3. IMIQUIMOD [Suspect]
     Indication: SKIN CANCER
     Dosage: (DF TOPICAL)
     Route: 061
  4. IRON [Concomitant]
  5. FOLIC ACID [Concomitant]
  6. SPIRONOLACTONE [Concomitant]
  7. FUROSEMIDE [Concomitant]
  8. ALLOPURINOL [Concomitant]
  9. THEOPHYLLINE [Concomitant]

REACTIONS (8)
  - HYPERKERATOSIS [None]
  - KERATOACANTHOMA [None]
  - NAIL PIGMENTATION [None]
  - SKIN CANCER [None]
  - SKIN LESION [None]
  - SKIN REACTION [None]
  - SKIN ULCER [None]
  - SQUAMOUS CELL CARCINOMA [None]
